FAERS Safety Report 7274825-1 (Version None)
Quarter: 2011Q1

REPORT INFORMATION
  Report Type: 
  Country: None (occurrence: None)
  Receive Date: 20110204
  Receipt Date: 20110128
  Transmission Date: 20110831
  Serious: Yes (Other)
  Sender: FDA-Public Use
  Company Number: NL-TEVA-265597ISR

PATIENT
  Sex: Male

DRUGS (2)
  1. PEMETREXED [Concomitant]
     Dates: start: 20101013, end: 20101103
  2. CISPLATIN [Suspect]
     Dates: start: 20101013, end: 20101103

REACTIONS (1)
  - PERIPHERAL ARTERIAL OCCLUSIVE DISEASE [None]
